FAERS Safety Report 12843225 (Version 2)
Quarter: 2016Q4

REPORT INFORMATION
  Report Type: Spontaneous
  Country: JP (occurrence: JP)
  Receive Date: 20161013
  Receipt Date: 20161026
  Transmission Date: 20170207
  Serious: Yes (Hospitalization, Other)
  Sender: FDA-Public Use
  Company Number: JP-GLAXOSMITHKLINE-JP2016JPN143120

PATIENT
  Age: 20 Year
  Sex: Female
  Weight: 38 kg

DRUGS (1)
  1. LAMICTAL [Suspect]
     Active Substance: LAMOTRIGINE
     Indication: BIPOLAR DISORDER
     Dosage: 50 MG, QD
     Route: 048
     Dates: start: 20160825, end: 20160919

REACTIONS (1)
  - Drug reaction with eosinophilia and systemic symptoms [Not Recovered/Not Resolved]

NARRATIVE: CASE EVENT DATE: 20160917
